FAERS Safety Report 8772029 (Version 1)
Quarter: 2012Q4

REPORT INFORMATION
  Report Type: 
  Country: BR (occurrence: BR)
  Receive Date: 20120905
  Receipt Date: 20120905
  Transmission Date: 20130627
  Serious: Yes (Other)
  Sender: FDA-Public Use
  Company Number: PHHY2012BR076564

PATIENT
  Sex: Female

DRUGS (6)
  1. FORASEQ [Suspect]
     Indication: SINUSITIS
     Dosage: 1 DF, BID
  2. FORASEQ [Suspect]
     Indication: RHINITIS
  3. ATENOLOL [Concomitant]
     Indication: HYPERTENSION
     Dosage: 25 mg, daily
     Route: 048
  4. SYNTHROID [Concomitant]
     Indication: THYROID DISORDER
     Dosage: 88 mg, daily
     Route: 048
  5. OSTEONUTRI [Concomitant]
     Indication: OSTEOPOROSIS
     Dosage: 600 mg, TIW
     Route: 048
  6. BUDESONIDE [Concomitant]
     Indication: NASAL DISCOMFORT
     Dosage: 50 mg, BID

REACTIONS (3)
  - Swelling face [Not Recovered/Not Resolved]
  - Eye swelling [Not Recovered/Not Resolved]
  - Eye irritation [Not Recovered/Not Resolved]
